FAERS Safety Report 15523067 (Version 1)
Quarter: 2018Q4

REPORT INFORMATION
  Report Type: Spontaneous
  Country: US (occurrence: US)
  Receive Date: 20181015
  Receipt Date: 20181015
  Transmission Date: 20190205
  Serious: Yes (Other)
  Sender: FDA-Public Use
  Company Number: None

PATIENT
  Age: 46 Year
  Sex: Female
  Weight: 54 kg

DRUGS (2)
  1. ESCITALOPRAM [Suspect]
     Active Substance: ESCITALOPRAM OXALATE
     Indication: ANXIETY
  2. ESCITALOPRAM [Suspect]
     Active Substance: ESCITALOPRAM OXALATE
     Indication: DEPRESSION
     Dosage: ?          QUANTITY:6 DF DOSAGE FORM;?
     Route: 048
     Dates: start: 20181011, end: 20181015

REACTIONS (7)
  - Migraine [None]
  - Panic attack [None]
  - Frustration tolerance decreased [None]
  - Product substitution issue [None]
  - Depression [None]
  - Insomnia [None]
  - Quality of life decreased [None]

NARRATIVE: CASE EVENT DATE: 20181011
